FAERS Safety Report 7643070-X (Version None)
Quarter: 2011Q3

REPORT INFORMATION
  Report Type: 
  Country: None (occurrence: None)
  Receive Date: 20110728
  Receipt Date: 20110719
  Transmission Date: 20111222
  Serious: Yes (Other)
  Sender: FDA-Public Use
  Company Number: JP-ASTRAZENECA-2011SE41703

PATIENT
  Age: 70 Year
  Sex: Male

DRUGS (2)
  1. SEVOFLURANE [Suspect]
     Route: 055
  2. ROPIVACAINE HYDROCHLORIDE [Suspect]
     Indication: EPIDURAL ANAESTHESIA
     Dosage: STRENGTH: 7.5 MG/ML
     Route: 008

REACTIONS (4)
  - TOXICITY TO VARIOUS AGENTS [None]
  - DELAYED RECOVERY FROM ANAESTHESIA [None]
  - HYPERTENSION [None]
  - TACHYCARDIA [None]
